FAERS Safety Report 23762128 (Version 2)
Quarter: 2024Q2

REPORT INFORMATION
  Report Type: Spontaneous
  Country: US (occurrence: US)
  Receive Date: 20240419
  Receipt Date: 20240430
  Transmission Date: 20240716
  Serious: Yes (Life-Threatening, Hospitalization, Other)
  Sender: FDA-Public Use
  Company Number: US-PFIZER INC-PV202400050670

PATIENT
  Age: 81 Year
  Sex: Male

DRUGS (3)
  1. PAXLOVID [Interacting]
     Active Substance: NIRMATRELVIR\RITONAVIR
     Indication: COVID-19 treatment
     Dosage: UNK
  2. TACROLIMUS [Interacting]
     Active Substance: TACROLIMUS
     Indication: Prophylaxis
     Dosage: UNK
  3. TAMIFLU [Concomitant]
     Active Substance: OSELTAMIVIR PHOSPHATE
     Indication: COVID-19
     Dosage: UNK

REACTIONS (7)
  - Drug interaction [Unknown]
  - Immunosuppressant drug level increased [Unknown]
  - Lactic acidosis [Unknown]
  - Liver injury [Unknown]
  - Acute kidney injury [Unknown]
  - Septic shock [Unknown]
  - Escherichia bacteraemia [Unknown]
